FAERS Safety Report 5153486-1 (Version None)
Quarter: 2006Q4

REPORT INFORMATION
  Report Type: 
  Country: None (occurrence: None)
  Receive Date: 20061117
  Receipt Date: 20061108
  Transmission Date: 20070319
  Serious: Yes (Other)
  Sender: FDA-Public Use
  Company Number: PT-MERCK-0611PRT00003

PATIENT
  Age: 60 Year
  Sex: Female

DRUGS (3)
  1. FOSAMAX PLUS D [Suspect]
     Indication: OSTEOPOROSIS
     Route: 048
     Dates: start: 20061106, end: 20061106
  2. METFORMIN PAMOATE [Concomitant]
     Route: 065
  3. OMEPRAZOLE [Concomitant]
     Route: 065

REACTIONS (3)
  - BACK PAIN [None]
  - MYALGIA [None]
  - PYREXIA [None]
